FAERS Safety Report 18383136 (Version 1)
Quarter: 2020Q4

REPORT INFORMATION
  Report Type: Spontaneous
  Country: CN (occurrence: CN)
  Receive Date: 20201014
  Receipt Date: 20201014
  Transmission Date: 20210114
  Serious: Yes (Hospitalization, Other)
  Sender: FDA-Public Use
  Company Number: CN-LUPIN PHARMACEUTICALS INC.-2020-06624

PATIENT
  Age: 33 Year
  Sex: Male

DRUGS (4)
  1. SEVELAMER [Concomitant]
     Active Substance: SEVELAMER
     Indication: BLOOD PARATHYROID HORMONE ABNORMAL
     Dosage: 800 MILLIGRAM, TID
     Route: 065
  2. CINACALCET. [Suspect]
     Active Substance: CINACALCET
     Indication: BLOOD PARATHYROID HORMONE ABNORMAL
     Dosage: 25 MILLIGRAM, QD
     Route: 065
  3. CINACALCET. [Suspect]
     Active Substance: CINACALCET
     Dosage: 50 MILLIGRAM, QD
     Route: 065
  4. SODIUM THIOSULFATE [Suspect]
     Active Substance: SODIUM THIOSULFATE
     Indication: CALCIPHYLAXIS
     Dosage: 6 GRAM, QD
     Route: 042

REACTIONS (1)
  - Drug ineffective [Unknown]
